FAERS Safety Report 7460113-7 (Version None)
Quarter: 2011Q2

REPORT INFORMATION
  Report Type: 
  Country: None (occurrence: None)
  Receive Date: 20110505
  Receipt Date: 20110428
  Transmission Date: 20111010
  Serious: Yes (Other)
  Sender: FDA-Public Use
  Company Number: US-ELI_LILLY_AND_COMPANY-US201104001296

PATIENT
  Sex: Female

DRUGS (9)
  1. ASPIRIN [Concomitant]
     Dosage: UNK
  2. HUMALOG [Suspect]
     Dosage: UNK, PRN
     Route: 065
  3. LANTUS [Concomitant]
     Dosage: UNK
  4. CLONIDINE [Concomitant]
     Dosage: UNK
  5. HUMALOG [Suspect]
     Indication: TYPE 2 DIABETES MELLITUS
     Dosage: UNK, PRN
     Route: 065
  6. PAXIL [Concomitant]
     Dosage: UNK
  7. ENALAPRIL [Concomitant]
     Dosage: UNK
  8. SIMVASTATIN [Suspect]
     Dosage: UNK
  9. SYNTHROID [Concomitant]
     Dosage: 50 MG, QD

REACTIONS (3)
  - PULMONARY MASS [None]
  - INCORRECT DOSE ADMINISTERED [None]
  - ADENOCARCINOMA PANCREAS [None]
